FAERS Safety Report 10610804 (Version 1)
Quarter: 2014Q4

REPORT INFORMATION
  Report Type: Spontaneous
  Country: US (occurrence: US)
  Receive Date: 20141126
  Receipt Date: 20141126
  Transmission Date: 20150529
  Serious: Yes (Other)
  Sender: FDA-Public Use
  Company Number: US-TEVA-524531USA

PATIENT

DRUGS (2)
  1. NEUPRO [Concomitant]
     Active Substance: ROTIGOTINE
     Route: 065
  2. ROPINIROLE. [Suspect]
     Active Substance: ROPINIROLE
     Route: 065

REACTIONS (1)
  - Pulmonary hypertension [Unknown]
